FAERS Safety Report 17469643 (Version 1)
Quarter: 2020Q1

REPORT INFORMATION
  Report Type: Spontaneous
  Country: TW (occurrence: TW)
  Receive Date: 20200227
  Receipt Date: 20200227
  Transmission Date: 20200409
  Serious: Yes (Hospitalization, Other)
  Sender: FDA-Public Use
  Company Number: TW-VALIDUS PHARMACEUTICALS LLC-TW-2020VAL000150

PATIENT

DRUGS (3)
  1. TELEBRIX 35 /01047301/ [Suspect]
     Active Substance: MEGLUMINE IOXITHALAMATE\SODIUM IOXITHALAMATE
     Indication: SCAN WITH CONTRAST
     Dosage: 14 CC OF AN IONIC, HIGH-OSMOLARITY, IODINATED CONTRAST AGENT
     Route: 065
  2. PETHIDINE HYDROCHLORIDE [Suspect]
     Active Substance: MEPERIDINE HYDROCHLORIDE
     Indication: PRODUCT USED FOR UNKNOWN INDICATION
     Dosage: UNK
     Route: 030
  3. CEFAZOLIN [Suspect]
     Active Substance: CEFAZOLIN
     Indication: PRODUCT USED FOR UNKNOWN INDICATION
     Dosage: UNK
     Route: 042

REACTIONS (5)
  - Hepatotoxicity [Recovered/Resolved]
  - Cholestasis [Recovered/Resolved]
  - Pruritus [Recovered/Resolved]
  - Drug-induced liver injury [Recovered/Resolved]
  - Pneumobilia [Recovered/Resolved]
